FAERS Safety Report 8476667-8 (Version None)
Quarter: 2012Q2

REPORT INFORMATION
  Report Type: 
  Country: None (occurrence: None)
  Receive Date: 20120628
  Receipt Date: 20120613
  Transmission Date: 20120825
  Serious: Yes (Other)
  Sender: FDA-Public Use
  Company Number: FR-VALEANT-2011VX001794

PATIENT
  Age: 38 Year
  Sex: Female

DRUGS (4)
  1. FLUCYTOSINE [Suspect]
     Route: 042
     Dates: start: 20110530, end: 20110607
  2. AMBISOME [Concomitant]
     Indication: ENDOCARDITIS CANDIDA
     Route: 065
  3. FLUCYTOSINE [Suspect]
     Indication: ENDOCARDITIS CANDIDA
     Route: 041
     Dates: start: 20110608, end: 20110609
  4. FLUCYTOSINE [Suspect]
     Route: 065
     Dates: start: 20110614

REACTIONS (2)
  - ACCIDENTAL OVERDOSE [None]
  - MEDICATION ERROR [None]
